FAERS Safety Report 6156734-4 (Version None)
Quarter: 2009Q2

REPORT INFORMATION
  Report Type: 
  Country: None (occurrence: None)
  Receive Date: 20090413
  Receipt Date: 20090413
  Transmission Date: 20091009
  Serious: Yes (Other)
  Sender: FDA-Public Use
  Company Number: None

PATIENT
  Age: 57 Year
  Sex: Female
  Weight: 62.5964 kg

DRUGS (1)
  1. BONIVA [Suspect]
     Indication: OSTEOPOROSIS
     Dosage: 150 MG 1 PER MONTH PO
     Route: 048
     Dates: start: 20090411, end: 20090411

REACTIONS (9)
  - ABDOMINAL DISCOMFORT [None]
  - ARTHRALGIA [None]
  - ASTHENIA [None]
  - BONE PAIN [None]
  - CHILLS [None]
  - HEADACHE [None]
  - MYALGIA [None]
  - NAUSEA [None]
  - PYREXIA [None]
